FAERS Safety Report 7419588-1 (Version None)
Quarter: 2011Q1

REPORT INFORMATION
  Report Type: 
  Country: None (occurrence: None)
  Receive Date: 20110302
  Receipt Date: 20101104
  Transmission Date: 20110831
  Serious: No
  Sender: FDA-Public Use
  Company Number: 021621

PATIENT
  Sex: Female

DRUGS (2)
  1. PREDNISOLONE [Concomitant]
  2. CIMZIA [Suspect]
     Indication: CROHN'S DISEASE
     Dosage: (400 MG 1X/MONTH SUBCUTANEOUS)
     Route: 058
     Dates: start: 20090305

REACTIONS (3)
  - INFLAMMATORY BOWEL DISEASE [None]
  - INFECTION [None]
  - PYREXIA [None]
